FAERS Safety Report 7214276-9 (Version None)
Quarter: 2011Q1

REPORT INFORMATION
  Report Type: 
  Country: None (occurrence: None)
  Receive Date: 20110107
  Receipt Date: 20101228
  Transmission Date: 20110831
  Serious: Yes (Hospitalization)
  Sender: FDA-Public Use
  Company Number: US-JNJFOC-20100501625

PATIENT
  Sex: Female

DRUGS (5)
  1. CHILDREN'S TYLENOL SUSPENSION [Suspect]
  2. CHILDREN'S MOTRIN [Suspect]
     Indication: PYREXIA
  3. CHILDREN'S TYLENOL PLUS MULTI-SYMPTOM COLD [Suspect]
     Indication: PYREXIA
  4. CHILDREN'S TYLENOL SUSPENSION [Suspect]
     Indication: PYREXIA
  5. CHILDREN'S MOTRIN [Suspect]

REACTIONS (2)
  - PRODUCT QUALITY ISSUE [None]
  - MALAISE [None]
